FAERS Safety Report 13430543 (Version 1)
Quarter: 2017Q2

REPORT INFORMATION
  Report Type: Spontaneous
  Country: US (occurrence: US)
  Receive Date: 20170411
  Receipt Date: 20170411
  Transmission Date: 20170830
  Serious: Yes (Other)
  Sender: FDA-Public Use
  Company Number: None

PATIENT
  Age: 71 Year
  Sex: Male
  Weight: 103.3 kg

DRUGS (1)
  1. ASCORBIC ACID/ZINC [Suspect]
     Active Substance: ASCORBIC ACID\ZINC
     Dates: start: 20161120

REACTIONS (3)
  - Anaphylactic reaction [None]
  - Angioedema [None]
  - Urticaria [None]

NARRATIVE: CASE EVENT DATE: 20161120
